FAERS Safety Report 21423697 (Version 1)
Quarter: 2022Q4

REPORT INFORMATION
  Report Type: Spontaneous
  Country: US (occurrence: None)
  Receive Date: 20221007
  Receipt Date: 20221007
  Transmission Date: 20230113
  Serious: Yes (Hospitalization, Disabling)
  Sender: FDA-Public Use
  Company Number: None

PATIENT
  Age: 74 Year
  Sex: Female
  Weight: 74.25 kg

DRUGS (1)
  1. TRIMETHOPRIM [Suspect]
     Active Substance: TRIMETHOPRIM
     Indication: Prophylaxis urinary tract infection
     Dosage: OTHER QUANTITY : 90 TABLET(S);?FREQUENCY : AT BEDTIME;?
     Route: 048
     Dates: start: 202206, end: 20221004

REACTIONS (4)
  - Nausea [None]
  - Decreased appetite [None]
  - Asthenia [None]
  - Treatment noncompliance [None]

NARRATIVE: CASE EVENT DATE: 20220619
